FAERS Safety Report 7919761-X (Version None)
Quarter: 2011Q4

REPORT INFORMATION
  Report Type: 
  Country: None (occurrence: None)
  Receive Date: 20111115
  Receipt Date: 20111105
  Transmission Date: 20120403
  Serious: Yes (Hospitalization, Other)
  Sender: FDA-Public Use
  Company Number: 2011SP052435

PATIENT
  Sex: Female

DRUGS (1)
  1. IMPLANON [Suspect]
     Indication: CONTRACEPTION
     Dosage: SC
     Route: 058
     Dates: start: 20070613, end: 20100620

REACTIONS (9)
  - GESTATIONAL HYPERTENSION [None]
  - VOMITING IN PREGNANCY [None]
  - NAUSEA [None]
  - IMPAIRED WORK ABILITY [None]
  - ACTIVITIES OF DAILY LIVING IMPAIRED [None]
  - INCORRECT DRUG ADMINISTRATION DURATION [None]
  - DEPRESSION [None]
  - PREGNANCY WITH IMPLANT CONTRACEPTIVE [None]
  - PROCEDURAL COMPLICATION [None]
